FAERS Safety Report 10301640 (Version 1)
Quarter: 2014Q3

REPORT INFORMATION
  Report Type: Spontaneous
  Country: US (occurrence: None)
  Receive Date: 20140710
  Receipt Date: 20140710
  Transmission Date: 20150326
  Serious: Yes (Other)
  Sender: FDA-Public Use
  Company Number: None

PATIENT
  Age: 81 Year
  Sex: Female

DRUGS (1)
  1. EXJADE [Suspect]
     Active Substance: DEFERASIROX
     Indication: SICKLE CELL ANAEMIA
     Route: 048
     Dates: start: 20120620, end: 20140501

REACTIONS (3)
  - Abdominal pain [None]
  - Diarrhoea [None]
  - Loss of consciousness [None]

NARRATIVE: CASE EVENT DATE: 20140430
